FAERS Safety Report 5321742-X (Version None)
Quarter: 2007Q2

REPORT INFORMATION
  Report Type: 
  Country: None (occurrence: None)
  Receive Date: 20070220
  Receipt Date: 20061018
  Transmission Date: 20071010
  Serious: No
  Sender: FDA-Public Use
  Company Number: TPA2006A01814

PATIENT
  Sex: Male

DRUGS (9)
  1. ROZEREM [Suspect]
     Indication: INSOMNIA
     Dosage: 8 MG, HS, PER ORAL
     Route: 048
  2. TESTOSTERONE [Concomitant]
  3. SYNTHROID [Concomitant]
  4. FOLIC ACID [Concomitant]
  5. VITAMIN D [Concomitant]
  6. EFFEXOR [Concomitant]
  7. ADDERALL XR (DEXAMFETAMINE SULFATE, AMFETAMINE SULFATE, DEXAMFETAMINE [Concomitant]
  8. XANAX [Concomitant]
  9. WELLBUTRIN XR (BUPROPION HYDROCHLORIDE) [Concomitant]

REACTIONS (5)
  - ARTHRALGIA [None]
  - BLOOD TESTOSTERONE DECREASED [None]
  - CONDITION AGGRAVATED [None]
  - NEUROPATHY [None]
  - PAIN IN EXTREMITY [None]
